FAERS Safety Report 15326160 (Version 1)
Quarter: 2018Q3

REPORT INFORMATION
  Report Type: Report from Study
  Country: CA (occurrence: CA)
  Receive Date: 20180828
  Receipt Date: 20180828
  Transmission Date: 20181010
  Serious: Yes (Life-Threatening, Hospitalization)
  Sender: FDA-Public Use
  Company Number: CA-JNJFOC-20180833704

PATIENT
  Age: 46 Year
  Sex: Female
  Weight: 70 kg

DRUGS (5)
  1. WELLBUTRIN [Concomitant]
     Active Substance: BUPROPION HYDROCHLORIDE
     Route: 048
  2. SERTRALINE [Concomitant]
     Active Substance: SERTRALINE HYDROCHLORIDE
     Route: 048
  3. FOLIC ACID. [Concomitant]
     Active Substance: FOLIC ACID
     Route: 048
  4. REMICADE [Suspect]
     Active Substance: INFLIXIMAB
     Indication: ANKYLOSING SPONDYLITIS
     Dosage: STRENGTH = 100 MG
     Route: 042
  5. QUETIAPINE. [Concomitant]
     Active Substance: QUETIAPINE
     Route: 048

REACTIONS (3)
  - Abdominal discomfort [Unknown]
  - Depression [Unknown]
  - Overdose [Recovering/Resolving]

NARRATIVE: CASE EVENT DATE: 20180816
